FAERS Safety Report 15967675 (Version 3)
Quarter: 2019Q2

REPORT INFORMATION
  Report Type: Report from Study
  Country: JP (occurrence: JP)
  Receive Date: 20190215
  Receipt Date: 20190523
  Transmission Date: 20190711
  Serious: Yes (Death, Hospitalization)
  Sender: FDA-Public Use
  Company Number: JP-CELGENEUS-JPN-20190110489

PATIENT
  Age: 80 Year
  Sex: Female
  Weight: 46 kg

DRUGS (19)
  1. MESALAZINE [Concomitant]
     Active Substance: MESALAMINE
     Indication: COLITIS ULCERATIVE
     Dosage: 500 MILLIGRAM
     Route: 065
     Dates: start: 1998
  2. REBAMIPIDE [Concomitant]
     Active Substance: REBAMIPIDE
     Indication: COLITIS ULCERATIVE
     Dosage: 100 MILLIGRAM
     Route: 065
     Dates: start: 1998
  3. DIMETHYL ISOPROPYLAZULENE [Concomitant]
     Indication: DRY SKIN PROPHYLAXIS
     Route: 065
     Dates: start: 20190321
  4. MAGNESIUM OXIDE. [Concomitant]
     Active Substance: MAGNESIUM OXIDE
     Indication: COLITIS ULCERATIVE
     Dosage: 330 MILLIGRAM
     Route: 065
     Dates: start: 20181222
  5. SENNOSIDE A+B [Concomitant]
     Active Substance: SENNOSIDES A AND B
     Indication: COLITIS ULCERATIVE
     Dosage: 12 MILLIGRAM
     Route: 065
     Dates: start: 20181226
  6. MEPENZOLATE BROMIDE [Concomitant]
     Active Substance: MEPENZOLATE BROMIDE
     Indication: COLITIS ULCERATIVE
     Dosage: 7.5 MILLIGRAM
     Route: 065
     Dates: start: 1998
  7. SODIUM GUALENATE [Concomitant]
     Active Substance: SODIUM GUALENATE
     Indication: PRODUCT USED FOR UNKNOWN INDICATION
     Dosage: .033 PERCENT
     Route: 065
     Dates: start: 20190321
  8. VIDAZA [Suspect]
     Active Substance: AZACITIDINE
     Indication: ACUTE MYELOID LEUKAEMIA
     Dosage: 75 MILLIGRAM/SQ. METER
     Route: 048
     Dates: start: 20181218, end: 20181224
  9. AMOXICILLIN HYDRATE [Concomitant]
     Active Substance: AMOXICILLIN
     Indication: OSTEOMYELITIS
     Dosage: 250 MILLIGRAM
     Route: 065
     Dates: start: 20190325
  10. FLUCONAZOLE. [Concomitant]
     Active Substance: FLUCONAZOLE
     Indication: INFECTION PROPHYLAXIS
     Dosage: 100 MILLIGRAM
     Route: 065
     Dates: start: 20190315
  11. LORAZEPAM. [Concomitant]
     Active Substance: LORAZEPAM
     Indication: INSOMNIA
     Dosage: .5 MILLIGRAM
     Route: 065
     Dates: start: 20190101
  12. POTASSIUM CHLORIDE. [Concomitant]
     Active Substance: POTASSIUM CHLORIDE
     Indication: HYPOKALAEMIA
     Dosage: 600 MILLIGRAM
     Route: 065
     Dates: start: 20190128
  13. FUROSEMIDE. [Concomitant]
     Active Substance: FUROSEMIDE
     Indication: OEDEMA
     Dosage: 20 MILLIGRAM
     Route: 065
     Dates: start: 20190319
  14. LOXOPROFEN SODIUM HYDRATE [Concomitant]
     Active Substance: LOXOPROFEN SODIUM DIHYDRATE
     Indication: PAIN
     Dosage: 100 MILLIGRAM
     Route: 065
     Dates: start: 20190322
  15. VIDAZA [Suspect]
     Active Substance: AZACITIDINE
     Dosage: 75 MILLIGRAM/SQ. METER
     Route: 048
     Dates: start: 20190208, end: 20190214
  16. MECOBALAMIN [Concomitant]
     Active Substance: METHYLCOBALAMIN
     Indication: OSTEOMYELITIS
     Dosage: 500 MICROGRAM
     Route: 065
     Dates: start: 20190325
  17. VIDAZA [Suspect]
     Active Substance: AZACITIDINE
     Dosage: 75 MILLIGRAM/SQ. METER
     Route: 048
     Dates: start: 20190318, end: 20190324
  18. LEVOFLOXACIN HEMIHYDRATE [Concomitant]
     Active Substance: LEVOFLOXACIN
     Indication: INFECTION PROPHYLAXIS
     Dosage: 500 MILLIGRAM
     Route: 065
     Dates: start: 20190315
  19. HEPARINOID [Concomitant]
     Active Substance: CHONDROITIN SULFATE (BOVINE)
     Indication: DRY SKIN PROPHYLAXIS
     Dosage: .3 PERCENT
     Route: 065
     Dates: start: 20190321

REACTIONS (2)
  - Pericardial effusion [Recovered/Resolved]
  - Sudden death [Fatal]

NARRATIVE: CASE EVENT DATE: 20190122
